FAERS Safety Report 10202165 (Version 2)
Quarter: 2014Q2

REPORT INFORMATION
  Report Type: Report from Study
  Country: JP (occurrence: JP)
  Receive Date: 20140528
  Receipt Date: 20140618
  Transmission Date: 20141212
  Serious: Yes (Other)
  Sender: FDA-Public Use
  Company Number: JP-GLAXOSMITHKLINE-B0891565A

PATIENT
  Age: 77 Year
  Sex: Male
  Weight: 64 kg

DRUGS (7)
  1. VOTRIENT 200MG [Suspect]
     Indication: ANGIOSARCOMA
     Dosage: 800MG PER DAY
     Route: 048
     Dates: start: 20130308, end: 20130418
  2. VOTRIENT 200MG [Suspect]
     Indication: ANGIOSARCOMA
     Dosage: 400MG PER DAY
     Route: 048
     Dates: start: 20130517, end: 20130523
  3. VOTRIENT 200MG [Suspect]
     Indication: ANGIOSARCOMA
     Dosage: 200MG PER DAY
     Route: 048
     Dates: start: 20130607, end: 20130620
  4. VOTRIENT 200MG [Suspect]
     Indication: ANGIOSARCOMA
     Dosage: 400MG PER DAY
     Route: 048
     Dates: start: 20130621
  5. TAKEPRON [Concomitant]
     Indication: ULCER
     Route: 065
  6. AMLODIPINE [Concomitant]
     Indication: HYPERTENSION
     Route: 048
  7. PREDONINE [Concomitant]
     Indication: PRURITUS
     Route: 065

REACTIONS (14)
  - Cellulitis [Recovered/Resolved]
  - Cellulitis [Recovered/Resolved]
  - Liver disorder [Recovering/Resolving]
  - Platelet count decreased [Recovering/Resolving]
  - Blood thyroid stimulating hormone increased [Recovering/Resolving]
  - Hypertension [Recovering/Resolving]
  - Palmar-plantar erythrodysaesthesia syndrome [Recovering/Resolving]
  - Blister [Recovering/Resolving]
  - Erythema [Recovering/Resolving]
  - Pain [Recovering/Resolving]
  - Diarrhoea [Recovering/Resolving]
  - Epistaxis [Recovering/Resolving]
  - Oedema peripheral [Recovering/Resolving]
  - White blood cell count decreased [Recovering/Resolving]
